FAERS Safety Report 16744048 (Version 1)
Quarter: 2019Q3

REPORT INFORMATION
  Report Type: Report from Study
  Country: DE (occurrence: DE)
  Receive Date: 20190827
  Receipt Date: 20190827
  Transmission Date: 20191005
  Serious: Yes (Other)
  Sender: FDA-Public Use
  Company Number: DE-BRISTOL-MYERS SQUIBB COMPANY-BMS-2018-094335

PATIENT
  Age: 72 Year
  Sex: Female
  Weight: 78 kg

DRUGS (1)
  1. APIXABAN [Suspect]
     Active Substance: APIXABAN
     Indication: EMBOLISM VENOUS
     Dosage: 10 MILLIGRAM, BID
     Route: 048
     Dates: start: 20180223

REACTIONS (4)
  - Dizziness [Unknown]
  - Transient ischaemic attack [Unknown]
  - Speech disorder [Unknown]
  - Visual impairment [Unknown]

NARRATIVE: CASE EVENT DATE: 20180605
